FAERS Safety Report 8580371-5 (Version None)
Quarter: 2012Q3

REPORT INFORMATION
  Report Type: 
  Country: None (occurrence: None)
  Receive Date: 20120808
  Receipt Date: 20120727
  Transmission Date: 20120928
  Serious: Yes (Hospitalization)
  Sender: FDA-Public Use
  Company Number: DE-ELI_LILLY_AND_COMPANY-DE201207008344

PATIENT
  Age: 50 Year
  Sex: Male

DRUGS (6)
  1. ATROVENT [Concomitant]
  2. RISPERIDONE [Concomitant]
  3. BYETTA [Suspect]
     Indication: TYPE 2 DIABETES MELLITUS
     Dosage: UNK, UNKNOWN
     Route: 058
     Dates: start: 20120601
  4. TARGIN [Concomitant]
  5. ANTIBIOTICS [Concomitant]
     Dosage: UNK, PRN
  6. ALBUTEROL SULATE [Concomitant]

REACTIONS (1)
  - MUSCLE SPASMS [None]
